FAERS Safety Report 15645684 (Version 1)
Quarter: 2018Q4

REPORT INFORMATION
  Report Type: Spontaneous
  Country: AU (occurrence: AU)
  Receive Date: 20181121
  Receipt Date: 20181121
  Transmission Date: 20190205
  Serious: Yes (Other)
  Sender: FDA-Public Use
  Company Number: AU-GE HEALTHCARE LIFE SCIENCES-2018CSU004704

PATIENT

DRUGS (1)
  1. OMNIPAQUE [Suspect]
     Active Substance: IOHEXOL
     Indication: PRODUCT USED FOR UNKNOWN INDICATION
     Dosage: 100 ML, SINGLE
     Route: 042
     Dates: start: 20181116, end: 20181116

REACTIONS (2)
  - Sneezing [Recovered/Resolved]
  - Rhinitis allergic [Recovered/Resolved]

NARRATIVE: CASE EVENT DATE: 20181116
